FAERS Safety Report 4942902-3 (Version None)
Quarter: 2006Q1

REPORT INFORMATION
  Report Type: 
  Country: None (occurrence: None)
  Receive Date: 20060314
  Receipt Date: 20060303
  Transmission Date: 20060701
  Serious: Yes (Hospitalization)
  Sender: FDA-Public Use
  Company Number: US-AMGEN-US171120

PATIENT
  Age: 69 Year
  Sex: Male

DRUGS (2)
  1. NEULASTA [Suspect]
     Indication: DRUG USE FOR UNKNOWN INDICATION
  2. GEMCITABINE [Concomitant]

REACTIONS (7)
  - BLOOD GLUCOSE INCREASED [None]
  - ELECTROCARDIOGRAM ST-T CHANGE [None]
  - FEELING COLD [None]
  - HYPERHIDROSIS [None]
  - SHOULDER PAIN [None]
  - SPLENIC INFARCTION [None]
  - TACHYCARDIA [None]
